FAERS Safety Report 5300192-6 (Version None)
Quarter: 2007Q2

REPORT INFORMATION
  Report Type: 
  Country: None (occurrence: None)
  Receive Date: 20070411
  Receipt Date: 20070329
  Transmission Date: 20071010
  Serious: Yes (Hospitalization)
  Sender: FDA-Public Use
  Company Number: 2006S1000144

PATIENT
  Age: 77 Year
  Sex: Male
  Weight: 90 kg

DRUGS (10)
  1. CUBICIN [Suspect]
     Indication: ENDOCARDITIS
     Dates: start: 20060613
  2. WARFARIN SODIUM [Concomitant]
  3. RIFAMPIN [Concomitant]
  4. ZYVOX [Concomitant]
  5. CELEBREX [Concomitant]
  6. TOPROL-XL [Concomitant]
  7. LIPITOR [Concomitant]
  8. PANTOPRAZOLE [Concomitant]
  9. METHOCARBAMOL [Concomitant]
  10. VICODIN [Concomitant]

REACTIONS (7)
  - ALDOLASE INCREASED [None]
  - ARTHRITIS BACTERIAL [None]
  - BLOOD CREATINE PHOSPHOKINASE INCREASED [None]
  - INTERNATIONAL NORMALISED RATIO INCREASED [None]
  - OSTEOARTHRITIS [None]
  - PROTHROMBIN TIME PROLONGED [None]
  - STAPHYLOCOCCAL INFECTION [None]
